FAERS Safety Report 23143150 (Version 1)
Quarter: 2023Q4

REPORT INFORMATION
  Report Type: Spontaneous
  Country: US (occurrence: None)
  Receive Date: 20231103
  Receipt Date: 20231103
  Transmission Date: 20240109
  Serious: Yes (Other)
  Sender: FDA-Public Use
  Company Number: None

PATIENT
  Age: 54 Year
  Sex: Female
  Weight: 2.29 kg

DRUGS (3)
  1. CITALOPRAM [Suspect]
     Active Substance: CITALOPRAM HYDROBROMIDE
     Indication: Anxiety
     Dates: start: 20231030, end: 20231101
  2. LEVOTHYROXINE [Concomitant]
     Active Substance: LEVOTHYROXINE
  3. VITAMINS [Concomitant]
     Active Substance: VITAMINS

REACTIONS (7)
  - Dry mouth [None]
  - Headache [None]
  - Nausea [None]
  - Heart rate increased [None]
  - Tremor [None]
  - Therapy cessation [None]
  - Job dissatisfaction [None]

NARRATIVE: CASE EVENT DATE: 20231030
